FAERS Safety Report 15130381 (Version 6)
Quarter: 2018Q4

REPORT INFORMATION
  Report Type: Spontaneous
  Country: US (occurrence: US)
  Receive Date: 20180711
  Receipt Date: 20181217
  Transmission Date: 20190204
  Serious: No
  Sender: FDA-Public Use
  Company Number: US-PFIZER INC-2018279896

PATIENT
  Age: 69 Year
  Sex: Female
  Weight: 119 kg

DRUGS (5)
  1. LYRICA [Suspect]
     Active Substance: PREGABALIN
     Indication: NEUROPATHY PERIPHERAL
     Dosage: 50 MG, 2X/DAY (50MG, ONE CAPSULE BY MOUTH TWICE DAILY)
     Route: 048
  2. LYRICA [Suspect]
     Active Substance: PREGABALIN
     Indication: DIABETIC NEUROPATHY
     Dosage: 50 MG, 2X/DAY
     Route: 048
     Dates: start: 2017, end: 20181201
  3. LORAZEPAM. [Concomitant]
     Active Substance: LORAZEPAM
     Indication: ANXIETY
     Dosage: 10 MG, 3X/DAY(10MG THREE TIMES PER DAY BY MOUTH)
     Route: 048
  4. LYRICA [Suspect]
     Active Substance: PREGABALIN
     Indication: NEURALGIA
     Dosage: 50 MG, 2X/DAY
     Route: 048
  5. LYRICA [Suspect]
     Active Substance: PREGABALIN
     Indication: DIABETES MELLITUS

REACTIONS (7)
  - Vomiting [Unknown]
  - Eating disorder [Not Recovered/Not Resolved]
  - Crying [Unknown]
  - Nausea [Not Recovered/Not Resolved]
  - Withdrawal syndrome [Unknown]
  - Malaise [Not Recovered/Not Resolved]
  - Depressed mood [Unknown]

NARRATIVE: CASE EVENT DATE: 2018
